FAERS Safety Report 24455080 (Version 2)
Quarter: 2024Q4

REPORT INFORMATION
  Report Type: Spontaneous
  Country: MY (occurrence: MY)
  Receive Date: 20241017
  Receipt Date: 20241018
  Transmission Date: 20250114
  Serious: No
  Sender: ROCHE
  Company Number: MY-ROCHE-3476420

PATIENT
  Age: 32 Year
  Sex: Male

DRUGS (1)
  1. MABTHERA [Suspect]
     Active Substance: RITUXIMAB
     Indication: Evans syndrome
     Route: 042

REACTIONS (3)
  - Pruritus [Recovered/Resolved]
  - Oropharyngeal discomfort [Recovered/Resolved]
  - Blood pressure decreased [Recovered/Resolved]
